FAERS Safety Report 6092366-4 (Version None)
Quarter: 2009Q1

REPORT INFORMATION
  Report Type: 
  Country: None (occurrence: None)
  Receive Date: 20090225
  Receipt Date: 20090219
  Transmission Date: 20090719
  Serious: Yes (Other)
  Sender: FDA-Public Use
  Company Number: US-AVENTIS-200911383US

PATIENT
  Sex: Female
  Weight: 88.9 kg

DRUGS (9)
  1. LOVENOX [Suspect]
     Indication: PROPHYLAXIS
     Dates: start: 20031101
  2. LOVENOX [Suspect]
     Dates: start: 20031101
  3. ASPIRIN [Concomitant]
  4. SYNTHROID [Concomitant]
     Dosage: DOSE: UNK
  5. HYDROCHLOROTHIAZIDE [Concomitant]
     Dosage: DOSE: UNK
  6. ATACAND [Concomitant]
     Dosage: DOSE: UNK
  7. CLARITIN [Concomitant]
     Dosage: DOSE: UNK
  8. XANAX [Concomitant]
     Dosage: DOSE: UNK
  9. PARINUX [Concomitant]
     Dosage: DOSE: UNK

REACTIONS (3)
  - OEDEMA PERIPHERAL [None]
  - RASH [None]
  - RENAL IMPAIRMENT [None]
